FAERS Safety Report 8261226-2 (Version None)
Quarter: 2012Q2

REPORT INFORMATION
  Report Type: 
  Country: None (occurrence: None)
  Receive Date: 20120405
  Receipt Date: 20120326
  Transmission Date: 20120825
  Serious: Yes (Hospitalization)
  Sender: FDA-Public Use
  Company Number: US-ELI_LILLY_AND_COMPANY-US201202005108

PATIENT
  Sex: Female
  Weight: 61.224 kg

DRUGS (19)
  1. MULTI-VITAMIN [Concomitant]
  2. VITAMIN D [Concomitant]
  3. TYLENOL                                 /SCH/ [Concomitant]
     Dosage: UNK, PRN
  4. TRIAMCINOLONE [Concomitant]
  5. LOSARTAN POTASSIUM [Concomitant]
  6. LOMOTIL [Concomitant]
  7. FORTEO [Suspect]
     Indication: OSTEOPOROSIS
     Dosage: 20 UG, QD
     Route: 058
  8. FORTEO [Suspect]
     Dosage: 20 UG, QD
     Route: 058
     Dates: start: 20120208
  9. PREDNISONE TAB [Concomitant]
     Dosage: UNK
  10. RANITIDINE HCL [Concomitant]
  11. VOLTAREN [Concomitant]
  12. PLAQUENIL [Concomitant]
  13. CALCIUM CARBONATE [Concomitant]
  14. FORTEO [Suspect]
     Dosage: 20 UG, QD
     Route: 058
     Dates: start: 20120127, end: 20120131
  15. FERROUS GLUCONATE [Concomitant]
  16. MULTI-VITAMINS [Concomitant]
  17. GLIPIZIDE [Concomitant]
  18. TOPICAL                            /00806601/ [Concomitant]
  19. FLONASE [Concomitant]

REACTIONS (1)
  - DIVERTICULITIS [None]
